FAERS Safety Report 9714074 (Version 2)
Quarter: 2013Q4

REPORT INFORMATION
  Report Type: Report from Study
  Country: DE (occurrence: DE)
  Receive Date: 20131126
  Receipt Date: 20131206
  Transmission Date: 20140711
  Serious: Yes (Other)
  Sender: FDA-Public Use
  Company Number: DE-ACTELION-A-NJ2013-91802

PATIENT
  Age: 75 Year
  Sex: Male
  Weight: 72 kg

DRUGS (5)
  1. VENTAVIS [Suspect]
     Indication: PULMONARY HYPERTENSION
     Dosage: 2.5 MCG, 5 TIMES/DAY
     Route: 055
     Dates: start: 201309
  2. TRACLEER [Concomitant]
     Indication: PULMONARY ARTERIAL HYPERTENSION
     Route: 048
  3. TORASEMID [Concomitant]
  4. SPIRIVA [Concomitant]
  5. TAMSULOSIN [Concomitant]

REACTIONS (2)
  - Painful respiration [Recovered/Resolved]
  - Leukaemia [Recovered/Resolved]
